FAERS Safety Report 12147346 (Version 1)
Quarter: 2016Q1

REPORT INFORMATION
  Report Type: Spontaneous
  Country: US (occurrence: US)
  Receive Date: 20160304
  Receipt Date: 20160304
  Transmission Date: 20160526
  Serious: No
  Sender: FDA-Public Use
  Company Number: GXBR2014US002068

PATIENT
  Age: 38 Year
  Sex: Male
  Weight: 108.84 kg

DRUGS (4)
  1. NUVIGIL [Concomitant]
     Active Substance: ARMODAFINIL
     Indication: SOMNOLENCE
     Dosage: 200 MG, QD
     Route: 048
     Dates: start: 201402
  2. ORPHENADRINE CITRATE ER TABLETS [Suspect]
     Active Substance: ORPHENADRINE CITRATE
     Indication: MUSCLE RELAXANT THERAPY
     Dosage: 100 MG, QD
     Route: 065
     Dates: start: 201408, end: 201408
  3. ANDROGENS FOR TOPICAL USE [Concomitant]
     Indication: BLOOD TESTOSTERONE DECREASED
     Dosage: UNK
  4. TAMOXIFEN [Concomitant]
     Active Substance: TAMOXIFEN
     Indication: ANTIOESTROGEN THERAPY
     Dosage: 10 MG, QD
     Route: 048

REACTIONS (6)
  - Breast swelling [Recovered/Resolved]
  - Nipple pain [Recovered/Resolved]
  - Skin disorder [Recovered/Resolved]
  - Nipple disorder [Recovered/Resolved]
  - Breast tenderness [Recovered/Resolved]
  - Nipple swelling [Recovered/Resolved]

NARRATIVE: CASE EVENT DATE: 201408
